FAERS Safety Report 17182346 (Version 1)
Quarter: 2019Q4

REPORT INFORMATION
  Report Type: Spontaneous
  Country: CA (occurrence: CA)
  Receive Date: 20191220
  Receipt Date: 20191220
  Transmission Date: 20200122
  Serious: Yes (Life-Threatening)
  Sender: FDA-Public Use
  Company Number: CA-ROCHE-2500297

PATIENT
  Age: 34 Year
  Sex: Male
  Weight: 59.02 kg

DRUGS (10)
  1. KAVA [PIPER METHYSTICUM RHIZOME] [Concomitant]
  2. LEMON BALM [Concomitant]
     Active Substance: HERBALS\MELISSA OFFICINALIS
  3. BENZOE [Concomitant]
  4. MELATONIN [Concomitant]
     Active Substance: MELATONIN
  5. RIVOTRIL [Suspect]
     Active Substance: CLONAZEPAM
     Indication: INSOMNIA
     Route: 065
  6. CHAMOMILE [MATRICARIA RECUTITA] [Concomitant]
  7. GLYCINE. [Concomitant]
     Active Substance: GLYCINE
  8. PHENYLALANINE [Concomitant]
     Active Substance: PHENYLALANINE
  9. TYROSINE [Concomitant]
     Active Substance: TYROSINE
  10. TRYPTOPHAN [TRYPTOPHAN, L-] [Concomitant]

REACTIONS (18)
  - Decreased appetite [Recovering/Resolving]
  - Weight decreased [Recovering/Resolving]
  - Anxiety [Recovering/Resolving]
  - Constipation [Recovering/Resolving]
  - Fatigue [Recovering/Resolving]
  - Paraesthesia [Recovering/Resolving]
  - Flatulence [Recovering/Resolving]
  - Drug intolerance [Recovering/Resolving]
  - Insomnia [Recovering/Resolving]
  - Withdrawal syndrome [Recovering/Resolving]
  - Gastrointestinal disorder [Recovering/Resolving]
  - Food allergy [Recovering/Resolving]
  - Salivary hypersecretion [Recovering/Resolving]
  - Illness anxiety disorder [Recovering/Resolving]
  - Memory impairment [Recovering/Resolving]
  - Abdominal distension [Recovering/Resolving]
  - Cognitive disorder [Recovering/Resolving]
  - Feeling abnormal [Recovering/Resolving]
